FAERS Safety Report 9471179 (Version 4)
Quarter: 2014Q2

REPORT INFORMATION
  Report Type: Spontaneous
  Country: US (occurrence: US)
  Receive Date: 20130822
  Receipt Date: 20140527
  Transmission Date: 20141212
  Serious: Yes (Hospitalization)
  Sender: FDA-Public Use
  Company Number: US-B.I. PHARMACEUTICALS,INC./RIDGEFIELD-2013-BI-25806BP

PATIENT
  Sex: Male
  Weight: 77.11 kg

DRUGS (6)
  1. PRADAXA [Suspect]
     Indication: ATRIAL FIBRILLATION
     Dosage: 150 MG
     Route: 065
     Dates: start: 20120615, end: 20120821
  2. ASPIRIN [Concomitant]
     Dosage: 81 MG
     Route: 065
  3. CARVEDILOL [Concomitant]
     Dosage: 12.5 MG
     Route: 065
     Dates: start: 2011, end: 2013
  4. FUROSEMIDE [Concomitant]
     Dosage: 20 MG
     Route: 065
     Dates: start: 2011, end: 2013
  5. HYDRALAZINE [Concomitant]
     Dosage: 75 MG
     Route: 065
  6. PRAVASTATIN [Concomitant]
     Dosage: 40 MG
     Route: 065
     Dates: start: 2011, end: 2013

REACTIONS (3)
  - Lower gastrointestinal haemorrhage [Recovered/Resolved]
  - Iron deficiency anaemia [Unknown]
  - Renal failure acute [Unknown]
